FAERS Safety Report 19518500 (Version 3)
Quarter: 2022Q1

REPORT INFORMATION
  Report Type: Other
  Country: DE (occurrence: None)
  Receive Date: 20210712
  Receipt Date: 20220113
  Transmission Date: 20220423
  Serious: Yes (Other)
  Sender: FDA-Public Use
  Company Number: DE-ROCHE-2864702

PATIENT

DRUGS (6)
  1. RITUXIMAB [Suspect]
     Active Substance: RITUXIMAB
     Indication: Chronic lymphocytic leukaemia
     Route: 065
  2. VENETOCLAX [Suspect]
     Active Substance: VENETOCLAX
     Indication: Chronic lymphocytic leukaemia
     Route: 065
  3. FLUDARABINE [Concomitant]
     Active Substance: FLUDARABINE PHOSPHATE
  4. BENDAMUSTINE [Concomitant]
     Active Substance: BENDAMUSTINE
  5. IBRUTINIB [Concomitant]
     Active Substance: IBRUTINIB
  6. IDELALISIB [Concomitant]
     Active Substance: IDELALISIB

REACTIONS (11)
  - Infection [Unknown]
  - Neutropenia [Unknown]
  - Leukopenia [Unknown]
  - Diarrhoea [Unknown]
  - Thrombocytopenia [Unknown]
  - Nausea [Unknown]
  - Tumour lysis syndrome [Unknown]
  - Pyrexia [Unknown]
  - Anaemia [Unknown]
  - Fatigue [Unknown]
  - Abdominal pain upper [Unknown]
